FAERS Safety Report 5141611-8 (Version None)
Quarter: 2006Q4

REPORT INFORMATION
  Report Type: 
  Country: None (occurrence: None)
  Receive Date: 20061026
  Receipt Date: 20061011
  Transmission Date: 20070319
  Serious: Yes (Hospitalization)
  Sender: FDA-Public Use
  Company Number: 2006051769

PATIENT
  Age: 27 Year
  Sex: Female
  Weight: 50.8029 kg

DRUGS (2)
  1. BEXTRA [Suspect]
     Indication: PAIN
     Dosage: 10 MG (10 MG, 1 IN 1 D)
     Dates: start: 20040416
  2. BEXTRA [Suspect]
     Indication: TEMPOROMANDIBULAR JOINT SYNDROME
     Dosage: 10 MG (10 MG, 1 IN 1 D)
     Dates: start: 20040416

REACTIONS (17)
  - AGITATION [None]
  - ANXIETY [None]
  - ATRIAL FIBRILLATION [None]
  - CARDIOMYOPATHY [None]
  - CHEST PAIN [None]
  - COMPARTMENT SYNDROME [None]
  - CORONARY ARTERY DISEASE [None]
  - DEPRESSION [None]
  - EJECTION FRACTION DECREASED [None]
  - FALL [None]
  - HAEMATOMA [None]
  - INSOMNIA [None]
  - NERVOUSNESS [None]
  - PERONEAL NERVE PALSY [None]
  - SCAR [None]
  - VENTRICULAR FIBRILLATION [None]
  - VENTRICULAR TACHYCARDIA [None]
